FAERS Safety Report 4838243-5 (Version None)
Quarter: 2005Q4

REPORT INFORMATION
  Report Type: 
  Country: None (occurrence: None)
  Receive Date: 20051128
  Receipt Date: 20051004
  Transmission Date: 20060501
  Serious: Yes (Disabling)
  Sender: FDA-Public Use
  Company Number: US-MERCK-0510USA03242

PATIENT
  Age: 61 Year
  Sex: Male
  Weight: 102 kg

DRUGS (2)
  1. VIOXX [Suspect]
     Indication: MONARTHRITIS
     Route: 048
     Dates: start: 20000525, end: 20020401
  2. PREVACID [Concomitant]
     Route: 065

REACTIONS (3)
  - HEART INJURY [None]
  - LUNG DISORDER [None]
  - MYOCARDIAL INFARCTION [None]
